FAERS Safety Report 7572358-6 (Version None)
Quarter: 2011Q2

REPORT INFORMATION
  Report Type: 
  Country: None (occurrence: None)
  Receive Date: 20110624
  Receipt Date: 20110620
  Transmission Date: 20111010
  Serious: Yes (Hospitalization)
  Sender: FDA-Public Use
  Company Number: PHHY2011CA55358

PATIENT
  Sex: Male

DRUGS (2)
  1. CLOZAPINE [Suspect]
     Indication: SCHIZOPHRENIA
     Route: 048
     Dates: start: 20000404
  2. CLOZAPINE [Suspect]
     Dosage: 25 MG, UNK
     Dates: start: 20110617

REACTIONS (1)
  - RESPIRATORY DISTRESS [None]
